FAERS Safety Report 20503531 (Version 14)
Quarter: 2024Q1

REPORT INFORMATION
  Report Type: Report from Study
  Country: CO (occurrence: CO)
  Receive Date: 20220222
  Receipt Date: 20240109
  Transmission Date: 20240410
  Serious: Yes (Other)
  Sender: FDA-Public Use
  Company Number: CO-NOVARTISPH-NVSC2020CO052739

PATIENT
  Age: 53 Year
  Sex: Male
  Weight: 94 kg

DRUGS (5)
  1. COSENTYX [Suspect]
     Active Substance: SECUKINUMAB
     Indication: Psoriatic arthropathy
     Dosage: 150 MG, Q2W
     Route: 058
     Dates: start: 20170828
  2. COSENTYX [Suspect]
     Active Substance: SECUKINUMAB
     Dosage: 300 MG, QMO
     Route: 065
  3. COSENTYX [Suspect]
     Active Substance: SECUKINUMAB
     Dosage: 150 MG, Q2W (ONCE EVERY 2 WEEKS/ EVERY 15 DAYS/BIWEEKLY)
     Route: 058
  4. COSENTYX [Suspect]
     Active Substance: SECUKINUMAB
     Dosage: 150 MG, Q2W
     Route: 058
     Dates: start: 20221227
  5. COSENTYX [Suspect]
     Active Substance: SECUKINUMAB
     Dosage: 150 MG, Q2W (ONCE EVERY 2 WEEKS/ EVERY 15 DAYS)
     Route: 058

REACTIONS (7)
  - Paralysis [Recovering/Resolving]
  - Facial paralysis [Recovering/Resolving]
  - Inflammation [Recovered/Resolved]
  - Gait disturbance [Recovered/Resolved]
  - Influenza [Unknown]
  - Product supply issue [Unknown]
  - Inappropriate schedule of product administration [Unknown]

NARRATIVE: CASE EVENT DATE: 20170828
